FAERS Safety Report 7248591-X (Version None)
Quarter: 2011Q1

REPORT INFORMATION
  Report Type: 
  Country: None (occurrence: None)
  Receive Date: 20110128
  Receipt Date: 20101223
  Transmission Date: 20110831
  Serious: Yes (Other)
  Sender: FDA-Public Use
  Company Number: US-BAYER-2010-008460

PATIENT
  Sex: Female

DRUGS (1)
  1. ALEVE (CAPLET) [Suspect]
     Indication: SCIATICA

REACTIONS (5)
  - ANAPHYLACTIC REACTION [None]
  - SWELLING FACE [None]
  - THROAT TIGHTNESS [None]
  - RASH MACULAR [None]
  - DYSPNOEA [None]
